FAERS Safety Report 19089429 (Version 1)
Quarter: 2021Q2

REPORT INFORMATION
  Report Type: Report from Study
  Country: IT (occurrence: IT)
  Receive Date: 20210403
  Receipt Date: 20210403
  Transmission Date: 20210717
  Serious: Yes (Other)
  Sender: FDA-Public Use
  Company Number: IT-ACCORD-221863

PATIENT
  Age: 71 Year
  Sex: Male

DRUGS (8)
  1. AZACITIDINE ACCORD [Suspect]
     Active Substance: AZACITIDINE
     Indication: ACUTE MYELOID LEUKAEMIA RECURRENT
     Dosage: SUSPENSION FOR INJECTION
     Route: 058
     Dates: start: 20210111
  2. DIFLUCAN [Concomitant]
     Active Substance: FLUCONAZOLE
     Dosage: 200 MG
  3. ADENURIC [Concomitant]
     Active Substance: FEBUXOSTAT
     Dosage: 80 MG
  4. TORVAST [Concomitant]
     Active Substance: ATORVASTATIN
     Dosage: 20 MG
  5. AVODART [Concomitant]
     Active Substance: DUTASTERIDE
     Dosage: 0.5 MG
  6. ACICLIN [Concomitant]
     Active Substance: ACYCLOVIR
     Dosage: 400 MG
  7. SEQUACOR [Concomitant]
     Active Substance: BISOPROLOL
     Dosage: 2.5 MG
  8. PANTOPRAZOLE EG [Concomitant]
     Active Substance: PANTOPRAZOLE SODIUM
     Dosage: 40 MG GASTRO?RESISTANT TABLETS

REACTIONS (1)
  - Vascular purpura [Recovering/Resolving]

NARRATIVE: CASE EVENT DATE: 20210115
